FAERS Safety Report 6210202-X (Version None)
Quarter: 2009Q2

REPORT INFORMATION
  Report Type: 
  Country: None (occurrence: None)
  Receive Date: 20090601
  Receipt Date: 20090527
  Transmission Date: 20091009
  Serious: Yes (Death, Hospitalization)
  Sender: FDA-Public Use
  Company Number: GB-BAYER-200911116BNE

PATIENT
  Age: 70 Year
  Sex: Female

DRUGS (1)
  1. SORAFENIB [Suspect]
     Indication: UNEVALUABLE EVENT
     Dosage: UNIT DOSE: 200 MG
     Route: 048
     Dates: start: 20060406, end: 20090505

REACTIONS (5)
  - CHOLELITHIASIS [None]
  - CONFUSIONAL STATE [None]
  - DEHYDRATION [None]
  - HYPERCALCAEMIA [None]
  - PERIPHERAL MOTOR NEUROPATHY [None]
